FAERS Safety Report 6194299-1 (Version None)
Quarter: 2009Q2

REPORT INFORMATION
  Report Type: 
  Country: None (occurrence: None)
  Receive Date: 20090519
  Receipt Date: 20090514
  Transmission Date: 20091009
  Serious: Yes (Death)
  Sender: FDA-Public Use
  Company Number: CL-BRISTOL-MYERS SQUIBB COMPANY-14625230

PATIENT
  Sex: Female

DRUGS (1)
  1. IXEMPRA KIT [Suspect]
     Dosage: LAST INFUSION DURING JAN-2009
     Route: 042
     Dates: start: 20090101, end: 20090101

REACTIONS (1)
  - RENAL FAILURE [None]
